FAERS Safety Report 9577491 (Version 1)
Quarter: 2013Q4

REPORT INFORMATION
  Report Type: Spontaneous
  Country: US (occurrence: US)
  Receive Date: 20131001
  Receipt Date: 20131001
  Transmission Date: 20140711
  Serious: No
  Sender: FDA-Public Use
  Company Number: US-AMGEN-USASP2013008346

PATIENT
  Age: 48 Year
  Sex: Male
  Weight: 92.97 kg

DRUGS (2)
  1. ENBREL [Suspect]
     Indication: PRODUCT USED FOR UNKNOWN INDICATION
     Dosage: 50 MG, QWK
     Route: 058
  2. LANSOPRAZOLE [Concomitant]
     Dosage: 30 MG, DR

REACTIONS (2)
  - Nasopharyngitis [Unknown]
  - Viral infection [Unknown]
